FAERS Safety Report 14407783 (Version 2)
Quarter: 2018Q1

REPORT INFORMATION
  Report Type: Spontaneous
  Country: PL (occurrence: PL)
  Receive Date: 20180118
  Receipt Date: 20180222
  Transmission Date: 20180509
  Serious: Yes (Hospitalization, Other)
  Sender: FDA-Public Use
  Company Number: PL-TEVA-2018-PL-844530

PATIENT
  Age: 57 Year
  Sex: Female

DRUGS (14)
  1. TACROLIMUS. [Suspect]
     Active Substance: TACROLIMUS
     Route: 065
     Dates: start: 201606, end: 201606
  2. CICLOSPORIN [Suspect]
     Active Substance: CYCLOSPORINE
     Route: 065
     Dates: start: 2016
  3. MYCOPHENOLATE MOFETIL. [Suspect]
     Active Substance: MYCOPHENOLATE MOFETIL
     Indication: IMMUNOSUPPRESSANT DRUG THERAPY
     Route: 065
     Dates: start: 201606
  4. PIPERACILLIN/TAZOBACTAM [Concomitant]
     Active Substance: PIPERACILLIN SODIUM\TAZOBACTAM SODIUM
     Indication: EVIDENCE BASED TREATMENT
     Dosage: 1 DOSAGE FORM = PIPERACILLIN + TAZOBACTAM
     Dates: start: 201612
  5. METHYLPREDNISOLONE. [Concomitant]
     Active Substance: METHYLPREDNISOLONE
     Dosage: : FIVE PULSES OF METHYLPREDNISOLONE 500 MG WERE ADMINISTERED INTRAVENOUSLY
     Route: 042
     Dates: start: 201612
  6. MEROPENEM. [Concomitant]
     Active Substance: MEROPENEM
     Indication: C-REACTIVE PROTEIN INCREASED
     Dates: start: 2016
  7. LINEZOLID. [Concomitant]
     Active Substance: LINEZOLID
     Indication: C-REACTIVE PROTEIN INCREASED
     Dates: start: 2016
  8. NOREPINEPHRINE. [Concomitant]
     Active Substance: NOREPINEPHRINE
     Indication: CARDIAC DISORDER
     Dates: start: 2016
  9. MIDAZOLAM [Concomitant]
     Active Substance: MIDAZOLAM HYDROCHLORIDE
     Dates: start: 2016
  10. ACETYLSALICYLIC ACID [Concomitant]
     Active Substance: ASPIRIN
     Indication: ANTIPLATELET THERAPY
     Dates: start: 2016
  11. FLUCONAZOLE. [Concomitant]
     Active Substance: FLUCONAZOLE
     Route: 042
  12. CIPROFLOXACIN. [Concomitant]
     Active Substance: CIPROFLOXACIN
     Indication: EVIDENCE BASED TREATMENT
     Dates: start: 201612
  13. SULFAMETHOXAZOLE / TRIMETHOPRIM [Concomitant]
     Active Substance: SULFAMETHOXAZOLE\TRIMETHOPRIM
     Dosage: 1 DOSAGE FORM = COTRIMOXAZOLE + TRIMETHOPRIM
     Dates: start: 201612
  14. TICAGRELOR. [Concomitant]
     Active Substance: TICAGRELOR
     Indication: ANTIPLATELET THERAPY
     Dates: start: 2016

REACTIONS (3)
  - Acute coronary syndrome [Unknown]
  - Condition aggravated [Unknown]
  - Cardiotoxicity [Unknown]

NARRATIVE: CASE EVENT DATE: 2016
